FAERS Safety Report 8093178-2 (Version None)
Quarter: 2012Q1

REPORT INFORMATION
  Report Type: 
  Country: None (occurrence: None)
  Receive Date: 20120128
  Receipt Date: 20110909
  Transmission Date: 20120608
  Serious: No
  Sender: FDA-Public Use
  Company Number: US-ABBOTT-11P-163-0847749-00

PATIENT
  Sex: Female

DRUGS (2)
  1. AZOTHIAPRINE [Concomitant]
     Indication: PRODUCT USED FOR UNKNOWN INDICATION
  2. HUMIRA [Suspect]
     Indication: CROHN'S DISEASE
     Dates: start: 20110501

REACTIONS (5)
  - NIGHT SWEATS [None]
  - ABDOMINAL PAIN [None]
  - MALNUTRITION [None]
  - DYSPNOEA [None]
  - ARTHRALGIA [None]
